FAERS Safety Report 21994058 (Version 1)
Quarter: 2023Q1

REPORT INFORMATION
  Report Type: Spontaneous
  Country: US (occurrence: US)
  Receive Date: 20230215
  Receipt Date: 20230215
  Transmission Date: 20230417
  Serious: Yes (Life-Threatening, Hospitalization)
  Sender: FDA-Public Use
  Company Number: US-TEVA-2023-US-2854723

PATIENT
  Age: 42 Year
  Sex: Male
  Weight: 60.5 kg

DRUGS (8)
  1. ROCURONIUM [Suspect]
     Active Substance: ROCURONIUM BROMIDE
     Indication: General anaesthesia
     Dosage: NEUROMUSCULAR BLOCKADE
     Route: 042
  2. PROPOFOL [Suspect]
     Active Substance: PROPOFOL
     Indication: General anaesthesia
     Route: 042
  3. PROPOFOL [Suspect]
     Active Substance: PROPOFOL
     Dosage: 216000 UG/KG DAILY;
     Route: 042
  4. PROPOFOL [Suspect]
     Active Substance: PROPOFOL
     Route: 050
  5. DEXMEDETOMIDINE [Suspect]
     Active Substance: DEXMEDETOMIDINE
     Indication: General anaesthesia
     Dosage: 16.8 MG/KG DAILY;
     Route: 065
  6. LIDOCAINE [Suspect]
     Active Substance: LIDOCAINE
     Indication: General anaesthesia
     Dosage: 20CC DIVIDED DOSES
     Route: 065
  7. SEVOFLURANE [Suspect]
     Active Substance: SEVOFLURANE
     Indication: General anaesthesia
     Dosage: GENERAL ANAESTHESIA MAINTAINANCE
     Route: 065
  8. REMIFENTANIL [Suspect]
     Active Substance: REMIFENTANIL
     Indication: General anaesthesia
     Dosage: 720 UG/KG DAILY;
     Route: 042

REACTIONS (1)
  - Hyperthermia malignant [Recovered/Resolved]
